FAERS Safety Report 7992534-8 (Version None)
Quarter: 2011Q4

REPORT INFORMATION
  Report Type: 
  Country: None (occurrence: None)
  Receive Date: 20111219
  Receipt Date: 20111215
  Transmission Date: 20120403
  Serious: Yes (Life-Threatening)
  Sender: FDA-Public Use
  Company Number: US-ABBOTT-11P-163-0883467-01

PATIENT
  Sex: Male

DRUGS (15)
  1. COUMADIN [Concomitant]
     Indication: CARDIAC DISORDER
  2. TRILIPIX [Concomitant]
     Indication: BLOOD CHOLESTEROL
     Dates: start: 20070506
  3. FOLIC ACID [Concomitant]
     Indication: VITAMIN SUPPLEMENTATION
  4. METHOTREXATE [Concomitant]
     Indication: ARTHRITIS
  5. ALTACE [Concomitant]
     Indication: BLOOD PRESSURE
  6. OMEPRAZOLE [Concomitant]
     Indication: GASTROOESOPHAGEAL REFLUX DISEASE
     Dates: start: 20070506
  7. LIPITOR [Concomitant]
     Indication: BLOOD CHOLESTEROL
     Dates: start: 20110101
  8. CELECOXIB [Concomitant]
     Indication: ARTHRITIS
  9. HYDROCHLOROTHIAZIDE [Concomitant]
     Indication: DIURETIC THERAPY
  10. FOLIC ACID [Concomitant]
     Indication: ARTHRITIS
  11. VALSARTAN [Concomitant]
     Indication: BLOOD PRESSURE
  12. TYLENOL W/ CODEINE NO. 3 [Concomitant]
     Indication: ARTHRALGIA
     Dosage: 300/30 MG
  13. HUMIRA [Suspect]
     Indication: PSORIASIS
     Route: 058
     Dates: start: 20110102, end: 20111109
  14. COMMERCIAL HUMIRA [Concomitant]
     Indication: PSORIASIS
     Dates: start: 20030501
  15. METHOTREXATE [Concomitant]
     Indication: PSORIASIS
     Dosage: EVERY WEEK
     Dates: start: 20080101

REACTIONS (1)
  - SQUAMOUS CELL CARCINOMA [None]
